FAERS Safety Report 24169334 (Version 2)
Quarter: 2024Q3

REPORT INFORMATION
  Report Type: Spontaneous
  Country: NZ (occurrence: NZ)
  Receive Date: 20240802
  Receipt Date: 20240809
  Transmission Date: 20241017
  Serious: Yes (Other)
  Sender: PURDUE
  Company Number: NZ-NAPPMUNDI-GBR-2024-0118053

PATIENT

DRUGS (2)
  1. OXYCODONE HYDROCHLORIDE [Suspect]
     Active Substance: OXYCODONE HYDROCHLORIDE
     Indication: Dyspnoea
     Dosage: 5 MILLIGRAM, BID
     Route: 048
     Dates: start: 2020
  2. OXYCODONE HYDROCHLORIDE [Suspect]
     Active Substance: OXYCODONE HYDROCHLORIDE
     Indication: Dyspnoea
     Dosage: 2.5 MILLIGRAM, Q4H
     Route: 048
     Dates: start: 2020

REACTIONS (10)
  - Gastrointestinal haemorrhage [Unknown]
  - Therapeutic response unexpected [Unknown]
  - Gastrointestinal disorder [Recovered/Resolved]
  - Product use in unapproved indication [Unknown]
  - Product taste abnormal [Unknown]
  - Haemorrhoids [Unknown]
  - Loss of personal independence in daily activities [Recovering/Resolving]
  - Flatulence [Recovered/Resolved]
  - Decreased appetite [Recovered/Resolved]
  - Pain [Recovered/Resolved]

NARRATIVE: CASE EVENT DATE: 20200101
